FAERS Safety Report 13141029 (Version 1)
Quarter: 2017Q1

REPORT INFORMATION
  Report Type: Spontaneous
  Country: US (occurrence: US)
  Receive Date: 20170123
  Receipt Date: 20170123
  Transmission Date: 20170428
  Serious: Yes (Other)
  Sender: FDA-Public Use
  Company Number: US-PFIZER INC-2017030134

PATIENT
  Sex: Male

DRUGS (2)
  1. LYRICA [Suspect]
     Active Substance: PREGABALIN
     Indication: NERVE INJURY
  2. LYRICA [Suspect]
     Active Substance: PREGABALIN
     Indication: MUSCULAR WEAKNESS

REACTIONS (4)
  - Spinal fracture [Unknown]
  - Osteoporosis [Unknown]
  - Eczema [Unknown]
  - Sinusitis [Unknown]

NARRATIVE: CASE EVENT DATE: 2014
